FAERS Safety Report 10229065 (Version 8)
Quarter: 2014Q3

REPORT INFORMATION
  Report Type: Spontaneous
  Country: US (occurrence: US)
  Receive Date: 20140610
  Receipt Date: 20140807
  Transmission Date: 20150326
  Serious: Yes (Death, Hospitalization, Other)
  Sender: FDA-Public Use
  Company Number: US-GILEAD-2014-0104404

PATIENT
  Age: 68 Year
  Sex: Female

DRUGS (3)
  1. REVATIO [Concomitant]
     Active Substance: SILDENAFIL CITRATE
  2. REMODULIN [Concomitant]
     Active Substance: TREPROSTINIL
  3. LETAIRIS [Suspect]
     Active Substance: AMBRISENTAN
     Indication: PRODUCT USED FOR UNKNOWN INDICATION
     Dosage: 5 MG, QD
     Route: 065
     Dates: start: 20130823

REACTIONS (7)
  - Diarrhoea [Unknown]
  - Clostridium difficile infection [Unknown]
  - Sepsis [Unknown]
  - Death [Fatal]
  - Pneumonia [Unknown]
  - Bacterial infection [Unknown]
  - Lung infection [Unknown]

NARRATIVE: CASE EVENT DATE: 20140731
